FAERS Safety Report 12461055 (Version 1)
Quarter: 2016Q2

REPORT INFORMATION
  Report Type: Spontaneous
  Country: US (occurrence: US)
  Receive Date: 20160613
  Receipt Date: 20160613
  Transmission Date: 20160815
  Serious: No
  Sender: FDA-Public Use
  Company Number: US-ALLERGAN-1523484US

PATIENT
  Sex: Female

DRUGS (2)
  1. KYBELLA [Suspect]
     Active Substance: DEOXYCHOLIC ACID
     Indication: FAT TISSUE INCREASED
     Dosage: 4 ML, UNK
     Route: 058
     Dates: start: 20150814, end: 20150814
  2. LIDOCAINE W/EPINEPHRINE [Concomitant]
     Active Substance: EPINEPHRINE\LIDOCAINE
     Dosage: 3 ML, UNK
     Dates: start: 20150814, end: 20150814

REACTIONS (5)
  - Hypersensitivity [Unknown]
  - Swollen tongue [Unknown]
  - Injection site swelling [Unknown]
  - Lip swelling [Unknown]
  - Swelling face [Unknown]

NARRATIVE: CASE EVENT DATE: 20150814
